FAERS Safety Report 8471395-7 (Version None)
Quarter: 2012Q2

REPORT INFORMATION
  Report Type: 
  Country: None (occurrence: None)
  Receive Date: 20120627
  Receipt Date: 20120618
  Transmission Date: 20120825
  Serious: Yes (Other)
  Sender: FDA-Public Use
  Company Number: US-ASTRAZENECA-2011SE38811

PATIENT
  Age: 42 Year
  Sex: Female

DRUGS (6)
  1. SEROQUEL [Suspect]
     Indication: STRESS
     Route: 048
  2. SEROQUEL [Suspect]
     Route: 048
  3. SEROQUEL [Suspect]
     Indication: BIPOLAR I DISORDER
     Route: 048
  4. SEROQUEL [Suspect]
     Route: 048
  5. SEROQUEL [Suspect]
     Indication: SLEEP DISORDER
     Route: 048
  6. SEROQUEL [Suspect]
     Route: 048

REACTIONS (6)
  - NERVOUS SYSTEM DISORDER [None]
  - BLINDNESS UNILATERAL [None]
  - SOMNOLENCE [None]
  - MIGRAINE WITH AURA [None]
  - HYPOAESTHESIA [None]
  - APHASIA [None]
